FAERS Safety Report 9671075 (Version 1)
Quarter: 2013Q4

REPORT INFORMATION
  Report Type: Spontaneous
  Country: US (occurrence: US)
  Receive Date: 20131106
  Receipt Date: 20131106
  Transmission Date: 20140711
  Serious: No
  Sender: FDA-Public Use
  Company Number: US-PFIZER INC-2013313627

PATIENT
  Age: 5 Year
  Sex: Male
  Weight: 22.7 kg

DRUGS (1)
  1. QUILLIVANT XR [Suspect]
     Indication: ATTENTION DEFICIT/HYPERACTIVITY DISORDER
     Dosage: 4 ML, DAILY
     Dates: start: 20131031

REACTIONS (2)
  - Off label use [Unknown]
  - Pollakiuria [Unknown]
